FAERS Safety Report 8846712 (Version 4)
Quarter: 2013Q4

REPORT INFORMATION
  Report Type: Spontaneous
  Country: US (occurrence: US)
  Receive Date: 20121017
  Receipt Date: 20131218
  Transmission Date: 20140711
  Serious: Yes (Hospitalization, Disabling, Other)
  Sender: FDA-Public Use
  Company Number: US-009507513-2012SP036104

PATIENT
  Sex: Female
  Weight: 102.49 kg

DRUGS (3)
  1. NUVARING [Suspect]
     Indication: MENSTRUATION IRREGULAR
     Dosage: UNK
     Route: 067
     Dates: start: 2000, end: 2006
  2. NUVARING [Suspect]
     Indication: POLYCYSTIC OVARIES
     Dosage: UNK
     Route: 067
     Dates: start: 201112, end: 201205
  3. NUVARING [Suspect]
     Indication: CONTRACEPTION
     Dosage: 1 RING WEEKLY
     Route: 067
     Dates: start: 20111230

REACTIONS (17)
  - Road traffic accident [Unknown]
  - Pulmonary embolism [Recovering/Resolving]
  - Deep vein thrombosis [Unknown]
  - Maternal exposure before pregnancy [Recovered/Resolved]
  - Ovarian cyst [Unknown]
  - Ovarian cyst [Unknown]
  - Migraine [Unknown]
  - Drug abuse [Unknown]
  - Drug abuse [Unknown]
  - Off label use [Unknown]
  - Drug prescribing error [Unknown]
  - Dyspareunia [Unknown]
  - Atelectasis [Recovering/Resolving]
  - Polycystic ovaries [Unknown]
  - Menometrorrhagia [Unknown]
  - Skin papilloma [Unknown]
  - Urinary tract infection [Unknown]
